FAERS Safety Report 9242159 (Version 1)
Quarter: 2013Q2

REPORT INFORMATION
  Report Type: Spontaneous
  Country: US (occurrence: US)
  Receive Date: 20130419
  Receipt Date: 20130419
  Transmission Date: 20140414
  Serious: Yes (Hospitalization)
  Sender: FDA-Public Use
  Company Number: US-GILEAD-2013-0070679

PATIENT
  Sex: Female

DRUGS (3)
  1. LETAIRIS [Suspect]
     Indication: PULMONARY ARTERIAL HYPERTENSION
     Dosage: 5 MG, QD
     Route: 048
     Dates: start: 20121001, end: 20130329
  2. EPOPROSTENOL [Concomitant]
  3. EPOPROSTENOL [Concomitant]

REACTIONS (4)
  - Pulmonary hypertension [Unknown]
  - Fluid retention [Unknown]
  - Swelling [Unknown]
  - Swelling [Recovering/Resolving]
